FAERS Safety Report 20691096 (Version 3)
Quarter: 2022Q2

REPORT INFORMATION
  Report Type: Spontaneous
  Country: JP (occurrence: JP)
  Receive Date: 20220408
  Receipt Date: 20220624
  Transmission Date: 20220721
  Serious: Yes (Death, Life-Threatening, Hospitalization)
  Sender: FDA-Public Use
  Company Number: JP-BAYER-2022A050644

PATIENT
  Age: 86 Year
  Sex: Male
  Weight: 55 kg

DRUGS (10)
  1. NUBEQA [Suspect]
     Active Substance: DAROLUTAMIDE
     Indication: Hormone-refractory prostate cancer
     Dosage: DAILY DOSE 600 MG
     Route: 048
     Dates: start: 20201026, end: 20220309
  2. ASPIRIN [Concomitant]
     Active Substance: ASPIRIN
     Dosage: 100 MG, QD
     Route: 048
     Dates: end: 20220309
  3. BISOPROLOL FUMARATE [Concomitant]
     Active Substance: BISOPROLOL FUMARATE
     Indication: Cardiac failure
     Dosage: 0.625 MG, QD
     Route: 048
     Dates: end: 20220309
  4. LANSOPRAZOLE [Concomitant]
     Active Substance: LANSOPRAZOLE
     Indication: Gastritis
     Dosage: 15 MG, QD
     Route: 048
     Dates: end: 20220309
  5. ALLOPURINOL [Concomitant]
     Active Substance: ALLOPURINOL
     Indication: Hyperuricaemia
     Dosage: 100 MG, QD
     Route: 048
     Dates: end: 20220309
  6. FLUNITRAZEPAM [Concomitant]
     Active Substance: FLUNITRAZEPAM
     Indication: Insomnia
     Dosage: 1 MG, QD
     Route: 048
     Dates: end: 20220309
  7. LANTHANUM CARBONATE [Concomitant]
     Active Substance: LANTHANUM CARBONATE
     Indication: Hyperphosphataemia
     Dosage: DAILY DOSE 2250 MG
     Route: 048
     Dates: end: 20220309
  8. SHAKUYAKUKANZOTO [Concomitant]
     Active Substance: HERBALS
     Indication: Seizure
     Dosage: DAILY DOSE 5 G
     Route: 048
     Dates: end: 20220309
  9. ALOSENN [ACHILLEA MILLEFOLIUM;RUBIA TINCTORUM ROOT TINCTURE;SENNA [Concomitant]
     Indication: Gastritis
     Dosage: 1 G, QD
     Route: 048
     Dates: end: 20220309
  10. GOSERELIN ACETATE [Concomitant]
     Active Substance: GOSERELIN ACETATE
     Indication: Hormone-refractory prostate cancer
     Dosage: 10.8MG, EVERY 12 WEEKS
     Dates: start: 20180524, end: 20220216

REACTIONS (7)
  - Cardiac failure congestive [Fatal]
  - Cardio-respiratory arrest [None]
  - Pleural effusion [None]
  - Blood pressure decreased [None]
  - Respiratory symptom [Fatal]
  - Heart rate decreased [Fatal]
  - Off label use [None]

NARRATIVE: CASE EVENT DATE: 20201026
